FAERS Safety Report 19103618 (Version 12)
Quarter: 2024Q4

REPORT INFORMATION
  Report Type: Spontaneous
  Country: US (occurrence: US)
  Receive Date: 20210407
  Receipt Date: 20241120
  Transmission Date: 20250115
  Serious: Yes (Other)
  Sender: PFIZER
  Company Number: US-PFIZER INC-2021349310

PATIENT
  Age: 56 Year
  Sex: Female
  Weight: 82.993 kg

DRUGS (5)
  1. BOSULIF [Suspect]
     Active Substance: BOSUTINIB MONOHYDRATE
     Indication: Chronic myeloid leukaemia
     Dosage: 400 MG, DAILY
     Route: 048
     Dates: start: 20210311
  2. BOSULIF [Suspect]
     Active Substance: BOSUTINIB MONOHYDRATE
     Indication: Chronic myelomonocytic leukaemia
     Dosage: TAKE 3 TABLETS BY MOUTH ONCE DAILY WITH FOOD
     Route: 048
  3. BOSULIF [Suspect]
     Active Substance: BOSUTINIB MONOHYDRATE
     Dosage: 100 MG TAB 120
  4. BOSULIF [Suspect]
     Active Substance: BOSUTINIB MONOHYDRATE
     Dosage: TAKE 3 TABLETS BY MOUTH ONCE DAILY WITH FOOD.
     Route: 048
  5. SPRYCEL [Concomitant]
     Active Substance: DASATINIB
     Dosage: UNK

REACTIONS (11)
  - Neuropathy peripheral [Unknown]
  - Sinusitis [Unknown]
  - Brain fog [Unknown]
  - Fatigue [Unknown]
  - Hypersensitivity [Unknown]
  - Diarrhoea [Unknown]
  - Abdominal pain [Unknown]
  - Mouth ulceration [Unknown]
  - Stomatitis [Unknown]
  - Back pain [Unknown]
  - Pain in extremity [Unknown]
